FAERS Safety Report 16793783 (Version 1)
Quarter: 2019Q3

REPORT INFORMATION
  Report Type: Spontaneous
  Country: US (occurrence: US)
  Receive Date: 20190911
  Receipt Date: 20190911
  Transmission Date: 20191005
  Serious: No
  Sender: FDA-Public Use
  Company Number: US-CIPLA LTD.-2019US04240

PATIENT

DRUGS (6)
  1. HYDROCORTISONE. [Concomitant]
     Active Substance: HYDROCORTISONE
     Indication: ENCEPHALITIS
     Dosage: 10 MILLIGRAM, QD, USING SINCE MORE THAN 40 YEARS AGO
     Route: 065
  2. ALENDRONATE [Suspect]
     Active Substance: ALENDRONATE SODIUM
     Indication: PELVIC FRACTURE
  3. ALENDRONATE [Suspect]
     Active Substance: ALENDRONATE SODIUM
     Indication: BONE DISORDER
     Dosage: 70 MILLIGRAM, ONCE A WEEK, TOOK FIRST PILL ON WEDNESDAY
     Route: 048
     Dates: start: 20190522
  4. LEVOTHYROXINE. [Concomitant]
     Active Substance: LEVOTHYROXINE
     Indication: ENCEPHALITIS
     Dosage: 20 (UNITS UNSPECIFIED), UNK
     Route: 065
  5. LEVOTHYROXINE. [Concomitant]
     Active Substance: LEVOTHYROXINE
     Dosage: 0.88 MILLIGRAM, QD
     Route: 065
  6. LEVOTHYROXINE. [Concomitant]
     Active Substance: LEVOTHYROXINE
     Dosage: 10 (UNITS UNSPECIFIED), MORE THAN 10 YEARS AGO LOWERED THE DOSE FROM 20 TO 10
     Route: 065

REACTIONS (6)
  - Impaired driving ability [Unknown]
  - Swelling face [Not Recovered/Not Resolved]
  - Feeling abnormal [Recovered/Resolved]
  - Ocular discomfort [Not Recovered/Not Resolved]
  - Pain [Not Recovered/Not Resolved]
  - Malaise [Not Recovered/Not Resolved]

NARRATIVE: CASE EVENT DATE: 20190522
